FAERS Safety Report 9555383 (Version 2)
Quarter: 2014Q1

REPORT INFORMATION
  Report Type: Spontaneous
  Country: US (occurrence: None)
  Receive Date: 20130906
  Receipt Date: 20131205
  Transmission Date: 20141002
  Serious: Yes (Hospitalization)
  Sender: FDA-Public Use
  Company Number: 163-POMAL-13080894

PATIENT
  Age: 78 Year
  Sex: Male

DRUGS (22)
  1. POMALYST [Suspect]
     Indication: PLASMA CELL MYELOMA
     Dosage: 4 MG, 21 IN 21 D
     Route: 048
     Dates: start: 20130708, end: 20130723
  2. ALLOPURINOL [Concomitant]
  3. AMLODIPINE BESYLATE [Concomitant]
  4. ASPIRIN (ACETYLSALICYLIC ACID) [Concomitant]
  5. BACTRIM DS (BACTRIM) [Concomitant]
  6. CALCIUM 500 +  D (CALCIUM D3 ^STADA^) [Concomitant]
  7. COLACE (DOCUSATE SODIUM) [Concomitant]
  8. FLOMAX (TAMSULOSIN HYDROCHLORIDE) [Concomitant]
  9. GLIMEPIRIDE [Concomitant]
  10. LANSOPRAZOLE [Concomitant]
  11. LIPITOR (ATORVASTATIN) [Concomitant]
  12. MAALOX ADVANCED (MAALOX MAX) [Concomitant]
  13. MIRALAX (MACROGOL) [Concomitant]
  14. MULTIVITAMINS [Concomitant]
  15. NITROGLYCERIN (GLYCERYL TRINITRATE) [Concomitant]
  16. SYNTHROID (LEVOTHYROXINE SODIUM) [Concomitant]
  17. VITAMIN D3 (COLECALCIFEROL) [Concomitant]
  18. BORTEZOMIB [Concomitant]
  19. MICRO-K (POTASSIUM CHLORIDE) [Concomitant]
  20. ACIPHEX (RABEPRAZOLE SODIUM) [Concomitant]
  21. CIPRO (CIPROFLOXACIN) [Concomitant]
  22. NEXIUM (ESOMEPRAZOLE) [Concomitant]

REACTIONS (2)
  - Full blood count decreased [None]
  - Platelet count decreased [None]
